FAERS Safety Report 8197118-7 (Version None)
Quarter: 2012Q1

REPORT INFORMATION
  Report Type: 
  Country: None (occurrence: None)
  Receive Date: 20120229
  Receipt Date: 20110117
  Transmission Date: 20120608
  Serious: Yes (Death)
  Sender: FDA-Public Use
  Company Number: DKLU1067869

PATIENT
  Age: 53 Year
  Sex: Male

DRUGS (6)
  1. ACETAMINOPHEN/HYDROCODONE BITARTRATE [Suspect]
     Indication: PRODUCT USED FOR UNKNOWN INDICATION
  2. DESOXYN [Suspect]
     Indication: PRODUCT USED FOR UNKNOWN INDICATION
  3. ACETYLCYSTEINE [Suspect]
     Indication: PRODUCT USED FOR UNKNOWN INDICATION
  4. MARIJUANA (CANNABIS SATIVA) [Suspect]
     Indication: PRODUCT USED FOR UNKNOWN INDICATION
  5. SKELETAL MUSCLE RELAXANT (MUSCLE RELAXANT) [Suspect]
     Indication: PRODUCT USED FOR UNKNOWN INDICATION
  6. CODEINE SULFATE [Suspect]
     Indication: PRODUCT USED FOR UNKNOWN INDICATION

REACTIONS (9)
  - ANGIOEDEMA [None]
  - DRUG HYPERSENSITIVITY [None]
  - MULTI-ORGAN FAILURE [None]
  - BRADYCARDIA [None]
  - ACUTE MYOCARDIAL INFARCTION [None]
  - HYPOTENSION [None]
  - TOXICITY TO VARIOUS AGENTS [None]
  - RASH [None]
  - BLOOD PH DECREASED [None]
